FAERS Safety Report 4918857-4 (Version None)
Quarter: 2006Q1

REPORT INFORMATION
  Report Type: 
  Country: None (occurrence: None)
  Receive Date: 20060222
  Receipt Date: 20060127
  Transmission Date: 20060701
  Serious: Yes (Hospitalization)
  Sender: FDA-Public Use
  Company Number: US-MERCK-0601USA03402

PATIENT
  Age: 73 Year
  Sex: Female
  Weight: 50 kg

DRUGS (17)
  1. VIOXX [Suspect]
     Indication: RHEUMATOID ARTHRITIS
     Route: 048
     Dates: start: 20020822, end: 20030211
  2. NEXIUM [Concomitant]
     Route: 065
  3. SALSALATE [Concomitant]
     Route: 065
  4. PREDNISONE [Concomitant]
     Route: 065
  5. NEURONTIN [Concomitant]
     Route: 065
  6. LASIX [Concomitant]
     Route: 065
  7. FORTEO [Concomitant]
     Route: 065
  8. ARICEPT [Concomitant]
     Route: 065
  9. METHOTREXATE [Concomitant]
     Route: 065
  10. OS-CAL [Concomitant]
     Route: 065
  11. ACTONEL [Concomitant]
     Route: 065
  12. PRILOSEC [Concomitant]
     Route: 065
  13. TYLENOL [Concomitant]
     Route: 065
  14. OXYIR [Concomitant]
     Route: 065
  15. FOLIC ACID [Concomitant]
     Route: 065
  16. VITAMINS (UNSPECIFIED) [Concomitant]
     Route: 065
  17. GLUCOSAMINE [Concomitant]
     Route: 065

REACTIONS (4)
  - LACUNAR INFARCTION [None]
  - PELVIC FRACTURE [None]
  - TRANSIENT ISCHAEMIC ATTACK [None]
  - UPPER LIMB FRACTURE [None]
